APPROVED DRUG PRODUCT: SYNTHETIC CONJUGATED ESTROGENS A
Active Ingredient: ESTROGENS, CONJUGATED SYNTHETIC A
Strength: 0.625MG/GM
Dosage Form/Route: CREAM;VAGINAL
Application: N021788 | Product #001
Applicant: TEVA WOMENS HEALTH INC
Approved: Nov 28, 2008 | RLD: No | RS: No | Type: DISCN